FAERS Safety Report 8999454 (Version 1)
Quarter: 2013Q1

REPORT INFORMATION
  Report Type: Report from Study
  Country: CA (occurrence: CA)
  Receive Date: 20130103
  Receipt Date: 20130103
  Transmission Date: 20140127
  Serious: Yes (Other)
  Sender: FDA-Public Use
  Company Number: CA-ROCHE-1175717

PATIENT
  Age: 46 Year
  Sex: Male

DRUGS (8)
  1. ALTEPLASE [Suspect]
     Indication: MYOCARDIAL INFARCTION
     Route: 042
  2. MORPHINE [Concomitant]
  3. LORAZEPAM [Concomitant]
  4. CEPHALOTHIN [Concomitant]
  5. NITROGLYCERIN PASTE [Concomitant]
  6. ATROPINE [Concomitant]
  7. DOPAMINE [Concomitant]
  8. METHYLPREDNISOLONE [Concomitant]

REACTIONS (4)
  - Cerebrovascular disorder [Not Recovered/Not Resolved]
  - Haematuria [Not Recovered/Not Resolved]
  - Confusional state [Not Recovered/Not Resolved]
  - Aneurysm [Not Recovered/Not Resolved]
